FAERS Safety Report 10081068 (Version 1)
Quarter: 2014Q2

REPORT INFORMATION
  Report Type: Spontaneous
  Country: US (occurrence: None)
  Receive Date: 20140415
  Receipt Date: 20140415
  Transmission Date: 20141212
  Serious: Yes (Hospitalization)
  Sender: FDA-Public Use
  Company Number: None

PATIENT
  Age: 78 Year
  Sex: Male
  Weight: 93.5 kg

DRUGS (9)
  1. ELIQUIS [Suspect]
     Indication: ATRIAL FIBRILLATION
     Dosage: 1 TABLET
     Route: 048
     Dates: start: 20131205, end: 20131205
  2. CHOLECALCIFEROL (VIT D3) [Concomitant]
  3. DOXEPIN [Concomitant]
  4. FISH OIL CAPS [Concomitant]
  5. HYDROCHLOROTHIAZIDE [Concomitant]
  6. LISINOPRIL [Concomitant]
  7. METFORMIN [Concomitant]
  8. METOPROLOL SUCCINATE [Concomitant]
  9. SIMVASTATIN [Concomitant]

REACTIONS (5)
  - Haematuria [None]
  - Sinus bradycardia [None]
  - Pulmonary mass [None]
  - Renal mass [None]
  - Coagulopathy [None]
